FAERS Safety Report 7447973 (Version 4)
Quarter: 2014Q2

REPORT INFORMATION
  Report Type: Report from Study
  Country: US (occurrence: US)
  Receive Date: 20100630
  Receipt Date: 20140519
  Transmission Date: 20141212
  Serious: Yes (Hospitalization, Other)
  Sender: FDA-Public Use
  Company Number: US-BIOGENIDEC-2010BI021468

PATIENT
  Sex: Male

DRUGS (2)
  1. AVONEX [Suspect]
     Indication: MULTIPLE SCLEROSIS
     Route: 030
  2. AVONEX [Suspect]
     Indication: MULTIPLE SCLEROSIS
     Route: 030
     Dates: start: 20070119

REACTIONS (11)
  - Lip neoplasm malignant stage unspecified [Recovered/Resolved]
  - Neoplasm malignant [Recovered/Resolved]
  - Hernia [Recovered/Resolved]
  - Multiple sclerosis [Recovered/Resolved]
  - Mobility decreased [Recovered/Resolved]
  - Scar [Recovered/Resolved]
  - Fumbling [Recovered/Resolved]
  - Arthritis [Not Recovered/Not Resolved]
  - Injection site pain [Recovered/Resolved]
  - Pain in extremity [Recovered/Resolved]
  - Pain [Recovered/Resolved]
